FAERS Safety Report 9852563 (Version 1)
Quarter: 2014Q1

REPORT INFORMATION
  Report Type: Spontaneous
  Country: IT (occurrence: None)
  Receive Date: 20140127
  Receipt Date: 20140127
  Transmission Date: 20141002
  Serious: Yes (Hospitalization)
  Sender: FDA-Public Use
  Company Number: 2014P1000399

PATIENT
  Age: 63 Year
  Sex: Female

DRUGS (5)
  1. OLANZAPINE [Suspect]
     Indication: DEPRESSION
  2. ARIPIRAZOLE [Suspect]
     Indication: DEPRESSION
  3. TRIAZOLAM [Concomitant]
  4. ALPRAZOLAM [Concomitant]
  5. PAROXETINE [Concomitant]

REACTIONS (3)
  - Akathisia [None]
  - Insomnia [None]
  - Irritability [None]
